FAERS Safety Report 19039326 (Version 1)
Quarter: 2021Q1

REPORT INFORMATION
  Report Type: Other
  Country: CA (occurrence: CA)
  Receive Date: 20210322
  Receipt Date: 20210322
  Transmission Date: 20210420
  Serious: Yes (Other)
  Sender: FDA-Public Use
  Company Number: CA-APOTEX-2021AP005977

PATIENT
  Age: 36 Year
  Sex: Female

DRUGS (8)
  1. ATROVENT [Suspect]
     Active Substance: IPRATROPIUM BROMIDE
     Indication: PRODUCT USED FOR UNKNOWN INDICATION
     Dosage: UNK
     Route: 065
  2. SINUS RINSE [Concomitant]
     Active Substance: SODIUM BICARBONATE\SODIUM CHLORIDE
     Indication: PRODUCT USED FOR UNKNOWN INDICATION
     Dosage: UNK
     Route: 045
  3. SALBUTAMOL [Suspect]
     Active Substance: ALBUTEROL
     Indication: ASTHMA
     Dosage: UNK
     Route: 065
  4. SYMBICORT [Suspect]
     Active Substance: BUDESONIDE\FORMOTEROL FUMARATE DIHYDRATE
     Indication: PRODUCT USED FOR UNKNOWN INDICATION
     Dosage: 2 DOSAGE FORM, BID
     Route: 065
  5. SINGULAIR [Suspect]
     Active Substance: MONTELUKAST SODIUM
     Indication: PRODUCT USED FOR UNKNOWN INDICATION
     Dosage: 10 MILLIGRAM, QD
     Route: 065
  6. CETIRIZINE [Concomitant]
     Active Substance: CETIRIZINE HYDROCHLORIDE
     Indication: PRODUCT USED FOR UNKNOWN INDICATION
     Dosage: UNK, BID
     Route: 065
  7. MONTELUKAST [Suspect]
     Active Substance: MONTELUKAST SODIUM
     Indication: PRODUCT USED FOR UNKNOWN INDICATION
     Dosage: UNK
     Route: 065
  8. SPIRIVA [Suspect]
     Active Substance: TIOTROPIUM BROMIDE MONOHYDRATE
     Indication: PRODUCT USED FOR UNKNOWN INDICATION
     Dosage: 1 DOSAGE FORM, QD
     Route: 065

REACTIONS (24)
  - Ear pain [Unknown]
  - Productive cough [Unknown]
  - Type 2 diabetes mellitus [Unknown]
  - Wheezing [Unknown]
  - Infection [Unknown]
  - Bronchitis [Unknown]
  - Allergic sinusitis [Unknown]
  - Depression [Unknown]
  - Obesity [Unknown]
  - Hypertension [Unknown]
  - Pharyngitis streptococcal [Unknown]
  - Urticaria [Unknown]
  - Therapeutic product effect incomplete [Unknown]
  - Breathing-related sleep disorder [Unknown]
  - Angioedema [Unknown]
  - Blood immunoglobulin E increased [Unknown]
  - Dyspnoea [Unknown]
  - Eosinophilia [Unknown]
  - Asthma [Unknown]
  - Bronchial hyperreactivity [Unknown]
  - Cholelithiasis [Unknown]
  - Oropharyngeal pain [Unknown]
  - Cough [Unknown]
  - Chest discomfort [Unknown]
